FAERS Safety Report 11186064 (Version 1)
Quarter: 2015Q2

REPORT INFORMATION
  Report Type: Report from Study
  Country: IT (occurrence: IT)
  Receive Date: 20150612
  Receipt Date: 20150612
  Transmission Date: 20150821
  Serious: Yes (Hospitalization, Other)
  Sender: FDA-Public Use
  Company Number: IT-GILEAD-2015-0143671

PATIENT
  Age: 80 Year
  Sex: Male
  Weight: 70 kg

DRUGS (14)
  1. BENDAMUSTINE [Suspect]
     Active Substance: BENDAMUSTINE
     Indication: CHRONIC LYMPHOCYTIC LEUKAEMIA
     Dosage: 70 MG/M2, Q4WK
     Route: 042
     Dates: start: 20130821, end: 20140305
  2. VIRGAN [Concomitant]
     Active Substance: GANCICLOVIR
  3. MEROPENEM. [Concomitant]
     Active Substance: MEROPENEM
  4. BACTRIM [Concomitant]
     Active Substance: SULFAMETHOXAZOLE\TRIMETHOPRIM
     Dosage: UNK
     Dates: start: 20141118
  5. LUXAZONE [Concomitant]
     Active Substance: DEXAMETHASONE
  6. RITUXIMAB [Suspect]
     Active Substance: RITUXIMAB
     Indication: CHRONIC LYMPHOCYTIC LEUKAEMIA
     Dosage: 500 MG/M2, Q4WK
     Route: 042
  7. IDELALISIB [Suspect]
     Active Substance: IDELALISIB
     Indication: CHRONIC LYMPHOCYTIC LEUKAEMIA
     Dosage: 150 MG, BID
     Route: 048
     Dates: start: 20130821, end: 20150310
  8. WARFARIN [Concomitant]
     Active Substance: WARFARIN
     Indication: ATRIAL FIBRILLATION
     Dosage: UNK
     Dates: start: 20150213
  9. ACICLOVIR [Concomitant]
     Active Substance: ACYCLOVIR
  10. FUROSEMIDE. [Concomitant]
     Active Substance: FUROSEMIDE
  11. RIVOTRIL [Concomitant]
     Active Substance: CLONAZEPAM
  12. TIMOPTIC [Concomitant]
     Active Substance: TIMOLOL MALEATE
  13. SERETIDE [Concomitant]
     Active Substance: FLUTICASONE FUROATE\SALMETEROL XINAFOATE
  14. OMEPRAZOLE. [Concomitant]
     Active Substance: OMEPRAZOLE
     Dosage: UNK

REACTIONS (3)
  - Respiratory failure [Recovered/Resolved]
  - Pneumonia [Recovered/Resolved]
  - Pyrexia [Recovered/Resolved]

NARRATIVE: CASE EVENT DATE: 20150310
